FAERS Safety Report 9464253 (Version 5)
Quarter: 2013Q4

REPORT INFORMATION
  Report Type: Spontaneous
  Country: JP (occurrence: JP)
  Receive Date: 20130819
  Receipt Date: 20131206
  Transmission Date: 20140711
  Serious: Yes (Other)
  Sender: FDA-Public Use
  Company Number: JP-JNJFOC-20130802712

PATIENT
  Age: 73 Year
  Sex: Female
  Weight: 55 kg

DRUGS (18)
  1. REMICADE [Suspect]
     Indication: RHEUMATOID ARTHRITIS
     Dosage: 23 INFUSIONS COMPLETED.
     Route: 042
     Dates: start: 20100223
  2. REMICADE [Suspect]
     Indication: RHEUMATOID ARTHRITIS
     Dosage: 23 RD INFUSION
     Route: 042
     Dates: start: 20130514
  3. REMICADE [Suspect]
     Indication: RHEUMATOID ARTHRITIS
     Route: 042
     Dates: start: 201303
  4. RHEUMATREX [Suspect]
     Indication: RHEUMATOID ARTHRITIS
     Route: 048
     Dates: start: 20100419, end: 20130619
  5. PREDONINE [Suspect]
     Indication: PRODUCT USED FOR UNKNOWN INDICATION
     Route: 048
     Dates: start: 20130722, end: 20130726
  6. PREDONINE [Suspect]
     Indication: PRODUCT USED FOR UNKNOWN INDICATION
     Route: 048
     Dates: start: 20100419, end: 20130619
  7. NORVASC [Concomitant]
     Route: 048
     Dates: start: 200410
  8. OMEPRAL [Concomitant]
     Route: 048
     Dates: start: 200703
  9. OMEPRAL [Concomitant]
     Route: 048
     Dates: start: 200703
  10. TOLTERODINE [Concomitant]
     Route: 048
     Dates: start: 200812
  11. MYSLEE [Concomitant]
     Route: 048
     Dates: start: 20100416
  12. FOSAMAC [Concomitant]
     Route: 048
     Dates: start: 20100430
  13. ZYLORIC [Concomitant]
     Route: 048
     Dates: start: 20100528
  14. VITANEURIN [Concomitant]
     Dosage: 1 TIME DOSE: 50 MG
     Route: 048
     Dates: start: 20100528
  15. GASTER-D [Concomitant]
     Dosage: 1 TIME DOSE: 20 MG
     Route: 048
     Dates: start: 20100528
  16. ASPARA-CA [Concomitant]
     Route: 048
     Dates: start: 20130528
  17. POLAPREZINC [Concomitant]
     Route: 048
     Dates: start: 201010
  18. CLARITIN  REDITABS [Concomitant]
     Route: 048
     Dates: start: 201012

REACTIONS (2)
  - Erythema multiforme [Recovered/Resolved]
  - Lip erosion [Recovered/Resolved]
